FAERS Safety Report 16021021 (Version 1)
Quarter: 2019Q2

REPORT INFORMATION
  Report Type: Spontaneous
  Country: US (occurrence: US)
  Receive Date: 20190228
  Receipt Date: 20190228
  Transmission Date: 20190711
  Serious: Yes (Hospitalization, Disabling, Other)
  Sender: FDA-Public Use
  Company Number: None

PATIENT
  Age: 62 Year
  Sex: Male
  Weight: 83.25 kg

DRUGS (1)
  1. MFG. ACTAVIS PILL STAMPED WATSON 1 MG. PILLS LORAZAPAM 1 MG. [Suspect]
     Active Substance: LORAZEPAM
     Indication: ANXIETY DISORDER
     Dosage: ?          QUANTITY:1 TABLET(S);OTHER FREQUENCY:1;?
     Route: 048
     Dates: start: 20180606, end: 20190228

REACTIONS (4)
  - Product substitution issue [None]
  - Myocardial infarction [None]
  - Panic attack [None]
  - Ill-defined disorder [None]

NARRATIVE: CASE EVENT DATE: 20181222
